FAERS Safety Report 18412053 (Version 1)
Quarter: 2020Q4

REPORT INFORMATION
  Report Type: Spontaneous
  Country: CA (occurrence: CA)
  Receive Date: 20201021
  Receipt Date: 20201021
  Transmission Date: 20210114
  Serious: Yes (Other)
  Sender: FDA-Public Use
  Company Number: CA-JNJFOC-20190727645

PATIENT
  Age: 72 Year
  Sex: Female
  Weight: 71 kg

DRUGS (6)
  1. PREDNISONE. [Concomitant]
     Active Substance: PREDNISONE
  2. METHOTREXATE. [Concomitant]
     Active Substance: METHOTREXATE
  3. PREDNISONE. [Concomitant]
     Active Substance: PREDNISONE
  4. REMICADE [Suspect]
     Active Substance: INFLIXIMAB
     Route: 042
     Dates: end: 20190620
  5. METHOTREXATE. [Concomitant]
     Active Substance: METHOTREXATE
     Route: 048
  6. REMICADE [Suspect]
     Active Substance: INFLIXIMAB
     Indication: RHEUMATOID ARTHRITIS
     Route: 042

REACTIONS (8)
  - Inappropriate schedule of product administration [Not Recovered/Not Resolved]
  - Off label use [Not Recovered/Not Resolved]
  - Infusion site pain [Not Recovered/Not Resolved]
  - Infusion site swelling [Not Recovered/Not Resolved]
  - Dyspnoea exertional [Not Recovered/Not Resolved]
  - Infusion site erythema [Not Recovered/Not Resolved]
  - Dyspnoea [Not Recovered/Not Resolved]
  - Pneumonia [Not Recovered/Not Resolved]
